FAERS Safety Report 14364861 (Version 2)
Quarter: 2018Q1

REPORT INFORMATION
  Report Type: Spontaneous
  Country: US (occurrence: US)
  Receive Date: 20180108
  Receipt Date: 20180202
  Transmission Date: 20180509
  Serious: Yes (Other)
  Sender: FDA-Public Use
  Company Number: US-DEPOMED, INC.-US-2017DEP002470

PATIENT

DRUGS (5)
  1. NUCYNTA [Suspect]
     Active Substance: TAPENTADOL HYDROCHLORIDE
     Indication: FIBROMYALGIA
     Dosage: 75 MG, PRN
     Route: 048
     Dates: start: 2015
  2. NUCYNTA ER [Suspect]
     Active Substance: TAPENTADOL HYDROCHLORIDE
     Indication: FIBROMYALGIA
     Dosage: 100 MG, PRN
     Route: 048
     Dates: start: 2015
  3. GABAPENTIN. [Concomitant]
     Active Substance: GABAPENTIN
     Indication: PRODUCT USED FOR UNKNOWN INDICATION
     Dosage: UNK
  4. NUCYNTA [Suspect]
     Active Substance: TAPENTADOL HYDROCHLORIDE
     Indication: PAIN
  5. NUCYNTA ER [Suspect]
     Active Substance: TAPENTADOL HYDROCHLORIDE
     Indication: PAIN

REACTIONS (13)
  - Malaise [Recovered/Resolved]
  - Oropharyngeal pain [Not Recovered/Not Resolved]
  - Speech disorder [Not Recovered/Not Resolved]
  - Blindness [Not Recovered/Not Resolved]
  - Memory impairment [Not Recovered/Not Resolved]
  - Medication error [Unknown]
  - Dysphonia [Unknown]
  - Arthritis [Not Recovered/Not Resolved]
  - Product use in unapproved indication [Unknown]
  - Cerebrovascular accident [Recovered/Resolved]
  - Insomnia [Not Recovered/Not Resolved]
  - Nausea [Not Recovered/Not Resolved]
  - Neoplasm malignant [Not Recovered/Not Resolved]

NARRATIVE: CASE EVENT DATE: 2015
